FAERS Safety Report 10657258 (Version 4)
Quarter: 2015Q2

REPORT INFORMATION
  Report Type: Spontaneous
  Country: US (occurrence: US)
  Receive Date: 20141217
  Receipt Date: 20150406
  Transmission Date: 20150821
  Serious: Yes (Hospitalization, Other)
  Sender: FDA-Public Use
  Company Number: US-BAYER-2014-185223

PATIENT
  Age: 36 Year
  Sex: Female

DRUGS (5)
  1. CIPRO [Concomitant]
     Active Substance: CIPROFLOXACIN HYDROCHLORIDE
  2. IBUPROFEN. [Concomitant]
     Active Substance: IBUPROFEN
     Indication: PAIN
     Dosage: 20 MCG/24HR, CONT
     Route: 015
     Dates: end: 20141110
  3. METROGEL [Concomitant]
     Active Substance: METRONIDAZOLE
  4. MIRENA [Suspect]
     Active Substance: LEVONORGESTREL
     Indication: CONTRACEPTION
     Dosage: 20 MCG/24HR, CONT
     Route: 015
     Dates: start: 20100219, end: 20140819
  5. TOPAMAX [Concomitant]
     Active Substance: TOPIRAMATE
     Indication: MIGRAINE
     Dosage: UNK
     Dates: start: 20130924

REACTIONS (11)
  - Abdominal pain [None]
  - Emotional distress [None]
  - Uterine perforation [None]
  - Medical device pain [None]
  - Depression [None]
  - Device difficult to use [None]
  - Pelvic pain [None]
  - Anxiety [None]
  - Device breakage [None]
  - Complication of device removal [None]
  - Injury [None]

NARRATIVE: CASE EVENT DATE: 201312
